FAERS Safety Report 23850815 (Version 1)
Quarter: 2024Q2

REPORT INFORMATION
  Report Type: Report from Study
  Country: CA (occurrence: CA)
  Receive Date: 20240514
  Receipt Date: 20240514
  Transmission Date: 20240715
  Serious: Yes (Hospitalization, Other)
  Sender: FDA-Public Use
  Company Number: CA-JAMP PHARMA CORPORATION-2023-JAM-CA-00643

PATIENT
  Age: 30 Year
  Sex: Female

DRUGS (1)
  1. SIMLANDI [Suspect]
     Active Substance: ADALIMUMAB-RYVK
     Indication: Ankylosing spondylitis
     Dosage: 40 MG, EVERY 2 WEEKS
     Route: 058

REACTIONS (10)
  - Ankylosing spondylitis [Unknown]
  - Migraine [Not Recovered/Not Resolved]
  - Sleep disorder [Unknown]
  - General physical health deterioration [Unknown]
  - Gait disturbance [Unknown]
  - Joint swelling [Unknown]
  - Inflammation [Unknown]
  - Hyperhidrosis [Unknown]
  - Off label use [Unknown]
  - Therapeutic response shortened [Unknown]

NARRATIVE: CASE EVENT DATE: 20230101
